FAERS Safety Report 9196126 (Version 1)
Quarter: 2013Q1

REPORT INFORMATION
  Report Type: Spontaneous
  Country: US (occurrence: None)
  Receive Date: 20120705
  Receipt Date: 20120705
  Transmission Date: 20140127
  Serious: Yes (Hospitalization)
  Sender: FDA-Public Use
  Company Number: US-CYPR-2012-000018

PATIENT
  Age: 76 Year
  Sex: Male
  Weight: 76 kg

DRUGS (8)
  1. CLOPIDOGREL\PLACEBO [Suspect]
     Indication: ANTIPLATELET THERAPY
     Route: 048
     Dates: start: 20101208
  2. ASPIRIN [Suspect]
     Indication: CORONARY ARTERY DISEASE
     Dosage: (162 MG, ORAL), (81 MG, ORAL)
     Route: 048
     Dates: start: 20091015, end: 20101207
  3. SIMVASTATIN [Concomitant]
  4. LISINOPRIL [Concomitant]
  5. NITROGLYCERINE [Concomitant]
  6. METOPROLOL [Concomitant]
  7. PANTOPRAZOLE [Concomitant]
  8. CYPHER STENT [Concomitant]

REACTIONS (1)
  - Non-cardiac chest pain [None]
